FAERS Safety Report 24274677 (Version 5)
Quarter: 2025Q4

REPORT INFORMATION
  Report Type: Spontaneous
  Country: KR (occurrence: KR)
  Receive Date: 20240902
  Receipt Date: 20251021
  Transmission Date: 20260117
  Serious: No
  Sender: PFIZER
  Company Number: KR-PFIZER INC-PV202400111688

PATIENT
  Age: 14 Year
  Sex: Male

DRUGS (1)
  1. GENOTROPIN [Suspect]
     Active Substance: SOMATROPIN
     Indication: Short stature
     Dosage: 7.2 IU, 6 TIMES A WEEK, 6 TIMES A WEEK AND 7 TIMES A WEEK
     Dates: start: 202306

REACTIONS (2)
  - Poor quality device used [Unknown]
  - Product contamination physical [Unknown]
